FAERS Safety Report 11237552 (Version 3)
Quarter: 2015Q4

REPORT INFORMATION
  Report Type: Spontaneous
  Country: PL (occurrence: PL)
  Receive Date: 20150703
  Receipt Date: 20151014
  Transmission Date: 20160304
  Serious: Yes (Death, Life-Threatening, Hospitalization, Other)
  Sender: FDA-Public Use
  Company Number: PL-009507513-1507POL000678

PATIENT
  Age: 55 Year
  Sex: Female
  Weight: 93 kg

DRUGS (6)
  1. REBETOL [Suspect]
     Active Substance: RIBAVIRIN
     Indication: HEPATITIS C
     Dosage: 600 MG, BID
     Route: 048
     Dates: start: 20130924, end: 20140526
  2. PEGINTRON [Suspect]
     Active Substance: PEGINTERFERON ALFA-2B
     Indication: HEPATITIS C
     Dosage: 100 MICROGRAM, QW (FREQUENCY:ALSO REPORTED AS 80 MICROGRAM /WEEK)
     Route: 058
     Dates: start: 20130924, end: 20140526
  3. ETHAMSYLATE [Concomitant]
     Active Substance: ETHAMSYLATE
     Indication: THROMBOCYTOPENIA
     Dosage: UNK UNK, TID
     Dates: start: 20131008, end: 20140526
  4. VICTRELIS [Suspect]
     Active Substance: BOCEPREVIR
     Indication: HEPATITIS C
     Dosage: 800 MG, TID
     Route: 048
     Dates: start: 20131022, end: 20140526
  5. FOLIC ACID. [Concomitant]
     Active Substance: FOLIC ACID
     Indication: ANAEMIA
     Dosage: UNK UNK, BID
     Dates: start: 20131008, end: 20140526
  6. GENSULIN M30 [Concomitant]
     Indication: DIABETES MELLITUS
     Dosage: UNK UNK, BID

REACTIONS (6)
  - Cerebrovascular accident [Fatal]
  - Asthenia [Unknown]
  - Anaemia [Unknown]
  - Insomnia [Unknown]
  - Pyrexia [Unknown]
  - Thrombocytopenia [Unknown]

NARRATIVE: CASE EVENT DATE: 2013
